FAERS Safety Report 9119744 (Version 1)
Quarter: 2013Q1

REPORT INFORMATION
  Report Type: Spontaneous
  Country: JP (occurrence: JP)
  Receive Date: 20130207
  Receipt Date: 20130207
  Transmission Date: 20140127
  Serious: Yes (Other)
  Sender: FDA-Public Use
  Company Number: PHHY2012JP039654

PATIENT
  Sex: Female

DRUGS (7)
  1. NEORAL [Suspect]
     Indication: HISTIOCYTOSIS HAEMATOPHAGIC
     Dosage: 3 MG/KG, UNK
  2. NEORAL [Suspect]
     Dosage: 2 MG/KG, UNK
  3. ETOPOSIDE [Suspect]
     Indication: HISTIOCYTOSIS HAEMATOPHAGIC
     Dosage: 150 MG/M2, UNK
  4. ETOPOSIDE [Suspect]
     Dosage: 50 MG/M2, UNK
  5. DEXAMETHASONE [Suspect]
     Indication: HISTIOCYTOSIS HAEMATOPHAGIC
     Dosage: 20 MG/M2, UNK
  6. METHYLPREDNISOLONE [Suspect]
     Dosage: 150 MG/KG, UNK
  7. METHYLPREDNISOLONE [Suspect]
     Dosage: 15 MG/KG, DAILY

REACTIONS (2)
  - Posterior reversible encephalopathy syndrome [Recovered/Resolved]
  - Blood pressure increased [Unknown]
